FAERS Safety Report 14054814 (Version 1)
Quarter: 2017Q4

REPORT INFORMATION
  Report Type: Spontaneous
  Country: US (occurrence: US)
  Receive Date: 20171006
  Receipt Date: 20171006
  Transmission Date: 20180321
  Serious: No
  Sender: FDA-Public Use
  Company Number: US-JNJFOC-20170718009

PATIENT
  Age: 8 Decade
  Sex: Female
  Weight: 57.61 kg

DRUGS (3)
  1. WOMENS ROGAINE UNSCENTED [Suspect]
     Active Substance: MINOXIDIL
     Route: 061
  2. CALTRATE [Concomitant]
     Active Substance: CALCIUM CARBONATE
     Indication: BONE DISORDER
     Route: 065
  3. WOMENS ROGAINE UNSCENTED [Suspect]
     Active Substance: MINOXIDIL
     Indication: ALOPECIA
     Dosage: SOMETIMES I USE A FULL CAPFUL
     Route: 061
     Dates: end: 20170721

REACTIONS (3)
  - Product formulation issue [Unknown]
  - Alopecia [Not Recovered/Not Resolved]
  - Overdose [Unknown]
